FAERS Safety Report 20339428 (Version 1)
Quarter: 2022Q1

REPORT INFORMATION
  Report Type: Spontaneous
  Country: US (occurrence: US)
  Receive Date: 20220117
  Receipt Date: 20220117
  Transmission Date: 20220424
  Serious: No
  Sender: FDA-Public Use
  Company Number: US-SA-SAC20220110000527

PATIENT
  Age: 59 Year
  Sex: Female

DRUGS (7)
  1. DUPIXENT [Suspect]
     Active Substance: DUPILUMAB
     Indication: Nasal polyps
     Dosage: 300 MG, QOW
     Route: 058
     Dates: start: 20211207
  2. ADVAIR HFA [Concomitant]
     Active Substance: FLUTICASONE PROPIONATE\SALMETEROL XINAFOATE
  3. STOOL SOFTENER (DOCUSATE) [Concomitant]
     Active Substance: DOCUSATE
     Dosage: 100 MG
  4. MUCINEX [Concomitant]
     Active Substance: GUAIFENESIN
  5. VITAMINS [Concomitant]
     Active Substance: VITAMINS
  6. LORATADINE [Concomitant]
     Active Substance: LORATADINE
     Dosage: 10 MG
  7. ZINC [Concomitant]
     Active Substance: ZINC

REACTIONS (3)
  - Injection site discolouration [Unknown]
  - Arthropod bite [Unknown]
  - Product use in unapproved indication [Unknown]
